FAERS Safety Report 20363909 (Version 1)
Quarter: 2022Q1

REPORT INFORMATION
  Report Type: Spontaneous
  Country: CA (occurrence: CA)
  Receive Date: 20220121
  Receipt Date: 20220121
  Transmission Date: 20220423
  Serious: Yes (Death, Hospitalization)
  Sender: FDA-Public Use
  Company Number: CA-PFIZER INC-202200046303

PATIENT
  Age: 57 Year
  Sex: Female
  Weight: 78 kg

DRUGS (12)
  1. CARBOPLATIN [Suspect]
     Active Substance: CARBOPLATIN
     Indication: Lung neoplasm malignant
  2. ETOPOSIDE [Suspect]
     Active Substance: ETOPOSIDE
     Indication: Lung neoplasm malignant
  3. BISACODYL [Concomitant]
     Active Substance: BISACODYL
  4. FENTANYL [Concomitant]
     Active Substance: FENTANYL
  5. GLYCERIN [Concomitant]
     Active Substance: GLYCERIN
  6. GLYCOPYRROLATE [Concomitant]
     Active Substance: GLYCOPYRROLATE
  7. HALOPERIDOL [Concomitant]
     Active Substance: HALOPERIDOL
  8. LORAZEPAM [Concomitant]
     Active Substance: LORAZEPAM
  9. LEVOMEPROMAZINE [Concomitant]
     Active Substance: LEVOMEPROMAZINE
  10. MIDAZOLAM [Concomitant]
     Active Substance: MIDAZOLAM
  11. ONDANSETRON [Concomitant]
     Active Substance: ONDANSETRON
  12. SCOPOLAMINE [Concomitant]
     Active Substance: SCOPOLAMINE

REACTIONS (3)
  - Acute kidney injury [Fatal]
  - Febrile neutropenia [Fatal]
  - Respiratory failure [Fatal]
